FAERS Safety Report 23495586 (Version 1)
Quarter: 2024Q1

REPORT INFORMATION
  Report Type: Spontaneous
  Country: GB (occurrence: GB)
  Receive Date: 20240207
  Receipt Date: 20240207
  Transmission Date: 20240409
  Serious: Yes (Hospitalization, Other)
  Sender: FDA-Public Use
  Company Number: GB-XEOLAS-UKAF04120240117

PATIENT
  Age: 3 Month
  Sex: Male

DRUGS (4)
  1. OMEPRAZOLE [Suspect]
     Active Substance: OMEPRAZOLE
     Indication: Reflux gastritis
     Dosage: 7.2 MILLIGRAM, QD
     Route: 065
  2. VITAMINS [Concomitant]
     Active Substance: VITAMINS
     Dosage: 0.6 MILLILITER, QD
     Route: 065
  3. FOLIC ACID [Concomitant]
     Active Substance: FOLIC ACID
     Dosage: 0.1 MILLIGRAM, QD
     Route: 065
  4. SODIUM FEREDETATE [Concomitant]
     Active Substance: SODIUM FEREDETATE
     Dosage: 5.5  MILLIGRAM QD (SODIUM FEREDETATE 27.5MG IRON IN 5ML ELIXIR )
     Route: 065

REACTIONS (4)
  - Constipation [Unknown]
  - Haematochezia [Recovered/Resolved]
  - Faeces discoloured [Unknown]
  - Incorrect dose administered [Unknown]
